FAERS Safety Report 5713899-3 (Version None)
Quarter: 2008Q2

REPORT INFORMATION
  Report Type: 
  Country: None (occurrence: None)
  Receive Date: 20080422
  Receipt Date: 20080422
  Transmission Date: 20081010
  Serious: No
  Sender: FDA-Public Use
  Company Number: None

PATIENT
  Sex: Female
  Weight: 78.0187 kg

DRUGS (1)
  1. PROPOFOL [Suspect]
     Indication: SEDATIVE THERAPY
     Dates: start: 20080416, end: 20080416

REACTIONS (11)
  - ASPIRATION [None]
  - BRONCHITIS [None]
  - FATIGUE [None]
  - PHARYNGOLARYNGEAL PAIN [None]
  - PNEUMONIA ASPIRATION [None]
  - POST PROCEDURAL COMPLICATION [None]
  - PROCEDURAL COMPLICATION [None]
  - PROCEDURAL DIZZINESS [None]
  - PROCEDURAL NAUSEA [None]
  - PROCEDURAL VOMITING [None]
  - SOMNOLENCE [None]
